FAERS Safety Report 4330544-2 (Version None)
Quarter: 2004Q2

REPORT INFORMATION
  Report Type: 
  Country: None (occurrence: None)
  Receive Date: 20040401
  Receipt Date: 20040401
  Transmission Date: 20050107
  Serious: No
  Sender: FDA-Public Use
  Company Number: None

PATIENT
  Age: 54 Year
  Sex: Male
  Weight: 92.1 kg

DRUGS (11)
  1. FOSINOPRIL SODIUM [Suspect]
     Indication: HYPERTENSION
     Dosage: 40MG, 40MG QD,ORAL
     Route: 048
  2. FELODIPINE [Concomitant]
  3. SILDENAFIL CITRATE [Concomitant]
  4. LORATADINE [Concomitant]
  5. FOSINOPRIL NA [Concomitant]
  6. PSEUDO 60/TRIPROLIDINE 2.5MG [Concomitant]
  7. METFORMIN HCL [Concomitant]
  8. GEMFIBROZIL [Concomitant]
  9. GABAPENTIN [Concomitant]
  10. GLYBURIDE [Concomitant]
  11. NORTRIPTYLINE HCL [Concomitant]

REACTIONS (1)
  - SWELLING FACE [None]
